FAERS Safety Report 10183758 (Version 1)
Quarter: 2014Q2

REPORT INFORMATION
  Report Type: Spontaneous
  Country: FR (occurrence: FR)
  Receive Date: 20140520
  Receipt Date: 20140520
  Transmission Date: 20141212
  Serious: Yes (Hospitalization)
  Sender: FDA-Public Use
  Company Number: PHHY2014FR058450

PATIENT
  Age: 88 Year
  Sex: Male

DRUGS (10)
  1. LOXEN LP [Suspect]
     Dosage: 50 MG, BID
     Route: 048
     Dates: start: 20131204, end: 20140128
  2. AMOXICILLIN [Suspect]
     Indication: VIRAL INFECTION
     Dosage: UNK UKN, UNK
  3. FORTZAAR [Suspect]
     Dosage: 1 DF, QD (HCTZ 25 MG, LOSA 100 MG)
     Route: 048
     Dates: start: 20131212, end: 20140128
  4. HYPERIUM [Suspect]
     Dosage: 1 MG, UNK
     Route: 048
     Dates: start: 20131004, end: 20140128
  5. OMEPRAZOLE [Concomitant]
     Dosage: 20 MG, QD
  6. SIMVASTATIN [Concomitant]
     Dosage: 20 MG, QD
  7. AVODART [Concomitant]
     Dosage: 0.5 MG, QD
  8. UVEDOSE [Concomitant]
     Dosage: 1 DF, Q3MO
  9. PARACETAMOL [Concomitant]
     Indication: PAIN
     Dosage: UNK UKN, PRN
  10. LEVOTHYROX [Concomitant]
     Dosage: 100 UG, UNK

REACTIONS (5)
  - Hepatocellular injury [Recovered/Resolved]
  - Rash maculo-papular [Recovered/Resolved]
  - Pyrexia [Recovered/Resolved]
  - Face oedema [Recovered/Resolved]
  - Eosinophilia [Recovered/Resolved]
